FAERS Safety Report 6795221-7 (Version None)
Quarter: 2010Q2

REPORT INFORMATION
  Report Type: 
  Country: None (occurrence: None)
  Receive Date: 20100625
  Receipt Date: 20100618
  Transmission Date: 20101027
  Serious: Yes (Other)
  Sender: FDA-Public Use
  Company Number: KR-ABBOTT-10P-090-0652177-00

PATIENT
  Age: 15 Year
  Sex: Female

DRUGS (7)
  1. CYCLOSPORINE [Suspect]
     Indication: PROPHYLAXIS AGAINST GRAFT VERSUS HOST DISEASE
     Route: 042
  2. CYCLOSPORINE [Suspect]
  3. METHOTREXATE [Suspect]
     Indication: PROPHYLAXIS AGAINST GRAFT VERSUS HOST DISEASE
  4. CYCLOPHOSPHAMIDE [Suspect]
     Indication: BONE MARROW TRANSPLANT
     Route: 042
  5. BUSULFEX [Concomitant]
     Indication: BONE MARROW TRANSPLANT
     Route: 042
  6. NADREPARIN [Concomitant]
     Indication: VENOOCCLUSIVE DISEASE
     Route: 042
  7. EGLANDIN [Concomitant]
     Indication: VENOOCCLUSIVE DISEASE
     Route: 042

REACTIONS (1)
  - REVERSIBLE POSTERIOR LEUKOENCEPHALOPATHY SYNDROME [None]
